FAERS Safety Report 7267492-4 (Version None)
Quarter: 2011Q1

REPORT INFORMATION
  Report Type: 
  Country: None (occurrence: None)
  Receive Date: 20110121
  Receipt Date: 20110114
  Transmission Date: 20110831
  Serious: Yes (Hospitalization, Disabling, Other)
  Sender: FDA-Public Use
  Company Number: 2009SP021075

PATIENT
  Age: 41 Year
  Sex: Female
  Weight: 66.2252 kg

DRUGS (1)
  1. NUVARING [Suspect]
     Indication: PRODUCT USED FOR UNKNOWN INDICATION
     Dates: start: 20040601, end: 20070821

REACTIONS (17)
  - ARTHROPATHY [None]
  - THROMBOSIS [None]
  - VAGINAL HAEMORRHAGE [None]
  - AUTOIMMUNE DISORDER [None]
  - ANXIETY [None]
  - ADJUSTMENT DISORDER [None]
  - GASTROOESOPHAGEAL REFLUX DISEASE [None]
  - DEEP VEIN THROMBOSIS [None]
  - CARPAL TUNNEL SYNDROME [None]
  - MAJOR DEPRESSION [None]
  - PULMONARY EMBOLISM [None]
  - DEPRESSION [None]
  - OVARIAN CYST [None]
  - HYPERCOAGULATION [None]
  - PNEUMONIA [None]
  - OSTEOARTHRITIS [None]
  - CERVICAL CYST [None]
